FAERS Safety Report 20685572 (Version 1)
Quarter: 2022Q2

REPORT INFORMATION
  Report Type: Spontaneous
  Country: KR (occurrence: KR)
  Receive Date: 20220407
  Receipt Date: 20220407
  Transmission Date: 20220721
  Serious: No
  Sender: FDA-Public Use
  Company Number: KR-PFIZER INC-202200522322

PATIENT

DRUGS (1)
  1. PAXLOVID [Suspect]
     Active Substance: NIRMATRELVIR\RITONAVIR
     Dosage: 2 TABLETS 3 TIMES A DAY FOR A TOTAL OF 3 DAYS

REACTIONS (1)
  - Intercepted product prescribing error [Unknown]
